FAERS Safety Report 12839128 (Version 3)
Quarter: 2016Q4

REPORT INFORMATION
  Report Type: Spontaneous
  Country: US (occurrence: US)
  Receive Date: 20161012
  Receipt Date: 20161227
  Transmission Date: 20170207
  Serious: Yes (Other)
  Sender: FDA-Public Use
  Company Number: US-BAYER-2016-196245

PATIENT
  Age: 45 Year
  Sex: Male

DRUGS (27)
  1. CIPROFLOXACIN MONOHYDROCHLORIDE [Suspect]
     Active Substance: CIPROFLOXACIN
     Indication: INFECTION PROPHYLAXIS
     Dosage: UNK
     Route: 048
     Dates: start: 20080414, end: 20080504
  2. PENICILLIN [Concomitant]
     Active Substance: PENICILLIN
     Indication: POST PROCEDURAL INFECTION
     Dosage: UNK
     Dates: start: 1990
  3. CIPROFLOXACIN MONOHYDROCHLORIDE [Suspect]
     Active Substance: CIPROFLOXACIN
     Indication: INFECTION PROPHYLAXIS
     Dosage: UNK
     Route: 048
     Dates: start: 20091014, end: 20091112
  4. CIPROFLOXACIN MONOHYDROCHLORIDE [Suspect]
     Active Substance: CIPROFLOXACIN
     Indication: INFECTION PROPHYLAXIS
     Dosage: UNK
     Route: 048
     Dates: start: 20111109, end: 20111111
  5. LEVOFLOXACIN. [Suspect]
     Active Substance: LEVOFLOXACIN
     Indication: INFECTION PROPHYLAXIS
     Dosage: UNK
     Dates: start: 20120220, end: 20120227
  6. KEFLEX [Concomitant]
     Active Substance: CEPHALEXIN
     Indication: POST PROCEDURAL INFECTION
     Dosage: UNK
     Dates: start: 1964
  7. IMIDAZOLE [Concomitant]
     Active Substance: IMIDAZOLE
     Dosage: UNK
     Dates: start: 1990
  8. ANTIDEPRESSANTS [Concomitant]
     Active Substance: UNSPECIFIED INGREDIENT
     Dosage: UNK
     Dates: start: 2006
  9. CHOLESTEROL- AND TRIGLYCERIDE REDUCERS [Concomitant]
     Active Substance: UNSPECIFIED INGREDIENT
     Dosage: UNK
     Dates: start: 2002
  10. CIPROFLOXACIN MONOHYDROCHLORIDE [Suspect]
     Active Substance: CIPROFLOXACIN
     Indication: POST PROCEDURAL INFECTION
     Dosage: UNK
     Route: 048
     Dates: start: 20080506, end: 20080616
  11. LEVAQUIN [Suspect]
     Active Substance: LEVOFLOXACIN
     Indication: POST PROCEDURAL INFECTION
  12. BUSPAR [Concomitant]
     Active Substance: BUSPIRONE HYDROCHLORIDE
     Indication: ANXIETY
     Dosage: 45 MG, QD
  13. CHOLESTEROL [Concomitant]
     Active Substance: CHOLESTEROL
     Dosage: UNK
     Dates: start: 2006
  14. TETRACYCLINE [Concomitant]
     Active Substance: TETRACYCLINE
     Indication: POST PROCEDURAL INFECTION
     Dosage: UNK
     Dates: start: 1980, end: 2000
  15. AVELOX [Suspect]
     Active Substance: MOXIFLOXACIN HYDROCHLORIDE
     Indication: POST PROCEDURAL INFECTION
  16. ATORVASTATIN [Concomitant]
     Active Substance: ATORVASTATIN
     Indication: BLOOD TRIGLYCERIDES INCREASED
     Dosage: 400 MG, QD
  17. STEROID ANTIBACTERIALS [Concomitant]
     Active Substance: UNSPECIFIED INGREDIENT
     Dosage: UNK
     Dates: start: 1964
  18. AMOXICILLINE [Concomitant]
     Active Substance: AMOXICILLIN
     Indication: POST PROCEDURAL INFECTION
     Dosage: UNK
     Dates: start: 1990
  19. ANTIEPILEPTICS [Concomitant]
     Active Substance: UNSPECIFIED INGREDIENT
     Dosage: UNK
     Dates: start: 2006
  20. LEVOFLOXACIN. [Suspect]
     Active Substance: LEVOFLOXACIN
     Indication: POST PROCEDURAL INFECTION
  21. DEPAKOTE [Concomitant]
     Active Substance: DIVALPROEX SODIUM
     Indication: AFFECTIVE DISORDER
     Dosage: 1500 MG, QD
  22. KLONOPIN [Concomitant]
     Active Substance: CLONAZEPAM
     Indication: AFFECTIVE DISORDER
     Dosage: 3 MG, QD
  23. SEROQUEL [Concomitant]
     Active Substance: QUETIAPINE FUMARATE
     Indication: ANXIETY
     Dosage: 400 MG, QD
  24. BETA-LACTAM ANTIBACTERIALS, PENICILLINS [Concomitant]
     Active Substance: PENICILLIN
     Dosage: UNK
     Dates: start: 1990
  25. ERYTHROMYCIN. [Concomitant]
     Active Substance: ERYTHROMYCIN
     Indication: POST PROCEDURAL INFECTION
     Dosage: UNK
     Dates: start: 1990
  26. AVELOX [Suspect]
     Active Substance: MOXIFLOXACIN HYDROCHLORIDE
     Indication: INFECTION PROPHYLAXIS
     Dosage: UNK
     Dates: start: 20090215, end: 20090221
  27. LEVAQUIN [Suspect]
     Active Substance: LEVOFLOXACIN
     Indication: INFECTION PROPHYLAXIS
     Dosage: UNK
     Dates: start: 20100715, end: 20100722

REACTIONS (7)
  - Bipolar disorder [Not Recovered/Not Resolved]
  - Neurogenic bladder [None]
  - Depression [Not Recovered/Not Resolved]
  - Anxiety [Not Recovered/Not Resolved]
  - Post-traumatic stress disorder [Not Recovered/Not Resolved]
  - Neuropathy peripheral [None]
  - Neuropathy peripheral [None]

NARRATIVE: CASE EVENT DATE: 200908
